FAERS Safety Report 22004418 (Version 2)
Quarter: 2023Q1

REPORT INFORMATION
  Report Type: Report from Study
  Country: GB (occurrence: GB)
  Receive Date: 20230217
  Receipt Date: 20230224
  Transmission Date: 20230417
  Serious: Yes (Congenital Anomaly)
  Sender: FDA-Public Use
  Company Number: GB-002147023-NVSC2023GB035422

PATIENT
  Age: 82 Year
  Sex: Male
  Weight: 74.3 kg

DRUGS (1)
  1. IMATINIB [Suspect]
     Active Substance: IMATINIB
     Indication: Gastrointestinal stromal tumour
     Dosage: 300 MG
     Route: 048
     Dates: start: 20210412, end: 20230204

REACTIONS (1)
  - Plasma cell myeloma [Not Recovered/Not Resolved]

NARRATIVE: CASE EVENT DATE: 20230131
